FAERS Safety Report 7693752-9 (Version None)
Quarter: 2011Q3

REPORT INFORMATION
  Report Type: 
  Country: None (occurrence: None)
  Receive Date: 20110819
  Receipt Date: 20110812
  Transmission Date: 20111222
  Serious: Yes (Other)
  Sender: FDA-Public Use
  Company Number: US-ROCHE-797252

PATIENT
  Sex: Female

DRUGS (1)
  1. BONIVA [Suspect]
     Route: 065

REACTIONS (4)
  - DYSARTHRIA [None]
  - MIGRAINE [None]
  - INFLUENZA LIKE ILLNESS [None]
  - BONE PAIN [None]
